FAERS Safety Report 7603557-2 (Version None)
Quarter: 2011Q3

REPORT INFORMATION
  Report Type: 
  Country: None (occurrence: None)
  Receive Date: 20110711
  Receipt Date: 20110711
  Transmission Date: 20111222
  Serious: Yes (Other)
  Sender: FDA-Public Use
  Company Number: None

PATIENT
  Sex: Female
  Weight: 49.4421 kg

DRUGS (1)
  1. BACTRIM DS [Suspect]
     Dosage: 1 TABLET BY MOUTHH TWICE A DAY
     Route: 048
     Dates: start: 20110702, end: 20110705

REACTIONS (3)
  - MYALGIA [None]
  - BACK PAIN [None]
  - BONE PAIN [None]
